FAERS Safety Report 23300327 (Version 1)
Quarter: 2023Q4

REPORT INFORMATION
  Report Type: Spontaneous
  Country: CA (occurrence: CA)
  Receive Date: 20231215
  Receipt Date: 20231215
  Transmission Date: 20240109
  Serious: Yes (Other)
  Sender: FDA-Public Use
  Company Number: CA-GILEAD-2023-0651024

PATIENT
  Age: 34 Year
  Sex: Male

DRUGS (2)
  1. TRUVADA [Suspect]
     Active Substance: EMTRICITABINE\TENOFOVIR DISOPROXIL FUMARATE
     Indication: Prophylaxis against HIV infection
     Dosage: 300/200
     Route: 048
     Dates: start: 20230726, end: 20230727
  2. TRUVADA [Suspect]
     Active Substance: EMTRICITABINE\TENOFOVIR DISOPROXIL FUMARATE
     Dosage: 300/200
     Route: 048
     Dates: start: 20221210, end: 20221212

REACTIONS (6)
  - Migraine [Recovered/Resolved]
  - Paraesthesia [Recovered/Resolved]
  - Swelling face [Recovered/Resolved]
  - Oral pruritus [Recovered/Resolved]
  - Tongue pruritus [Unknown]
  - Pruritus [Recovered/Resolved]

NARRATIVE: CASE EVENT DATE: 20221210
